FAERS Safety Report 6272432-0 (Version None)
Quarter: 2009Q3

REPORT INFORMATION
  Report Type: 
  Country: None (occurrence: None)
  Receive Date: 20090717
  Receipt Date: 20090708
  Transmission Date: 20100115
  Serious: Yes (Hospitalization)
  Sender: FDA-Public Use
  Company Number: CH-ASTRAZENECA-2009SE04370

PATIENT
  Age: 73 Year
  Sex: Male

DRUGS (12)
  1. DISTRANEURIN [Suspect]
     Route: 048
  2. DISTRANEURIN [Suspect]
     Dosage: THE PATIENT TOOK 3600 MG (TWICE THE PRESCRIBED DOSE)
     Route: 048
     Dates: start: 20081221, end: 20081221
  3. SEROQUEL [Suspect]
     Route: 048
  4. SEROQUEL [Suspect]
     Dosage: THE PATIENT TOOK 150 MG (TWICE THE PRESCRIBED DOSE)
     Route: 048
     Dates: start: 20081221, end: 20081221
  5. TENORMIN [Suspect]
     Route: 048
  6. TENORMIN [Suspect]
     Dosage: THE PATIENT TOOK 200 MG (TWICE THE PRESCRIBED DOSE)
     Route: 048
     Dates: start: 20081221, end: 20081221
  7. REMERON [Suspect]
     Route: 048
  8. REMERON [Suspect]
     Dosage: THE PATIENT TOOK 120 MG (TWICE THE PRESCRIBED DOSE)
     Route: 048
     Dates: start: 20081221, end: 20081221
  9. DEANXIT [Suspect]
     Route: 048
  10. DEANXIT [Suspect]
     Dosage: THE PATIENT TOOK 240 MG (TWICE THE PRESCRIBED DOSE)
     Route: 048
     Dates: start: 20081221, end: 20081221
  11. PLAVIX [Suspect]
     Route: 048
  12. PLAVIX [Suspect]
     Dosage: THE PATIENT TOOK 4 DF (TWICE THE PRESCRIBED DOSE)
     Route: 048
     Dates: start: 20081221, end: 20081221

REACTIONS (3)
  - BRADYCARDIA [None]
  - SOMNOLENCE [None]
  - SUICIDE ATTEMPT [None]
